FAERS Safety Report 16739115 (Version 2)
Quarter: 2019Q3

REPORT INFORMATION
  Report Type: Spontaneous
  Country: BE (occurrence: BE)
  Receive Date: 20190826
  Receipt Date: 20190905
  Transmission Date: 20191005
  Serious: Yes (Other)
  Sender: FDA-Public Use
  Company Number: BE-ROCHE-2381837

PATIENT
  Age: 51 Year
  Sex: Male
  Weight: 77 kg

DRUGS (11)
  1. RITUXIMAB. [Suspect]
     Active Substance: RITUXIMAB
     Indication: B-CELL LYMPHOMA
     Dosage: R CHOP : 8 CYCLI
     Route: 065
     Dates: start: 2013
  2. CYCLOPHOSPHAMIDE. [Suspect]
     Active Substance: CYCLOPHOSPHAMIDE
     Indication: B-CELL LYMPHOMA
     Dosage: R CHOP : 8 CYCLI
     Route: 065
     Dates: start: 2013
  3. DOXORUBICIN [Suspect]
     Active Substance: DOXORUBICIN
     Indication: B-CELL LYMPHOMA
     Dosage: R CHOP : 8 CYCLI
     Route: 065
     Dates: start: 2013
  4. BENDAMUSTINE [Suspect]
     Active Substance: BENDAMUSTINE
     Indication: B-CELL LYMPHOMA
     Route: 065
     Dates: start: 201811
  5. GAZYVARO [Suspect]
     Active Substance: OBINUTUZUMAB
     Indication: B-CELL LYMPHOMA
     Dosage: GAZYVA + BENDAMUSTINE
     Route: 065
     Dates: start: 201811
  6. CYTARABINE. [Suspect]
     Active Substance: CYTARABINE
     Indication: B-CELL LYMPHOMA
     Dosage: R DHAP
     Route: 065
     Dates: start: 201605
  7. PREDNISOLONE. [Suspect]
     Active Substance: PREDNISOLONE
     Indication: B-CELL LYMPHOMA
     Dosage: R CHOP : 8 CYCLI
     Route: 065
     Dates: start: 2013
  8. CISPLATIN. [Suspect]
     Active Substance: CISPLATIN
     Indication: B-CELL LYMPHOMA
     Dosage: R DHAP
     Route: 065
     Dates: start: 201605
  9. RITUXIMAB. [Suspect]
     Active Substance: RITUXIMAB
     Dosage: R DHAP
     Route: 065
     Dates: start: 201605
  10. VINCRISTINE [Suspect]
     Active Substance: VINCRISTINE
     Indication: B-CELL LYMPHOMA
     Dosage: R CHOP : 8 CYCLI
     Route: 065
     Dates: start: 2013
  11. DEXAMETHASONE. [Suspect]
     Active Substance: DEXAMETHASONE
     Indication: B-CELL LYMPHOMA
     Dosage: R DHAP
     Route: 065
     Dates: start: 201605

REACTIONS (2)
  - B-cell lymphoma recurrent [Unknown]
  - Cytomegalovirus infection [Not Recovered/Not Resolved]

NARRATIVE: CASE EVENT DATE: 201507
